FAERS Safety Report 4438732-1 (Version None)
Quarter: 2004Q3

REPORT INFORMATION
  Report Type: 
  Country: None (occurrence: None)
  Receive Date: 20040901
  Receipt Date: 20040824
  Transmission Date: 20050211
  Serious: Yes (Hospitalization)
  Sender: FDA-Public Use
  Company Number: 200416364US

PATIENT
  Sex: 0

DRUGS (3)
  1. DOCETAXEL [Suspect]
     Indication: NON-SMALL CELL LUNG CANCER
     Route: 042
     Dates: start: 20040623, end: 20040714
  2. CARBOPLATIN [Suspect]
     Indication: NON-SMALL CELL LUNG CANCER
     Dosage: DOSE: UNK
  3. RADIOTHERAPY NOS [Concomitant]
     Indication: NON-SMALL CELL LUNG CANCER

REACTIONS (1)
  - HYPOGLYCAEMIA [None]
